FAERS Safety Report 23796421 (Version 1)
Quarter: 2024Q2

REPORT INFORMATION
  Report Type: Spontaneous
  Country: GB (occurrence: GB)
  Receive Date: 20240430
  Receipt Date: 20240430
  Transmission Date: 20240716
  Serious: Yes (Other)
  Sender: FDA-Public Use
  Company Number: GB-HALEON-2166453

PATIENT
  Age: 45 Year
  Sex: Female
  Weight: 64 kg

DRUGS (8)
  1. TERBINAFINE [Suspect]
     Active Substance: TERBINAFINE
     Indication: Ill-defined disorder
     Dates: start: 20240321
  2. CLONIDINE [Concomitant]
     Active Substance: CLONIDINE
     Indication: Ill-defined disorder
     Dates: start: 20230515
  3. Utrogestan (Progesterone) [Concomitant]
     Indication: Ill-defined disorder
     Dates: start: 20221105
  4. Carbimazole (Carbimazole) [Concomitant]
     Indication: Ill-defined disorder
     Dates: start: 20221105
  5. Sertralin (Sertralin) [Concomitant]
     Indication: Ill-defined disorder
     Dates: start: 20231214
  6. ESTRADIOL [Concomitant]
     Active Substance: ESTRADIOL
     Indication: Ill-defined disorder
     Dates: start: 20221105
  7. TERBINAFINE [Concomitant]
     Active Substance: TERBINAFINE
     Indication: Ill-defined disorder
     Dates: start: 20240202, end: 20240315
  8. TERBINAFINE [Concomitant]
     Active Substance: TERBINAFINE
     Indication: Fungal infection

REACTIONS (1)
  - Liver function test abnormal [Recovering/Resolving]

NARRATIVE: CASE EVENT DATE: 20240321
